FAERS Safety Report 15665261 (Version 1)
Quarter: 2018Q4

REPORT INFORMATION
  Report Type: Report from Study
  Country: JP (occurrence: JP)
  Receive Date: 20181128
  Receipt Date: 20181128
  Transmission Date: 20190205
  Serious: Yes (Death)
  Sender: FDA-Public Use
  Company Number: JP-BEH-2018097167

PATIENT
  Age: 67 Year
  Sex: Male
  Weight: 57 kg

DRUGS (13)
  1. FUROSEMIDE. [Concomitant]
     Active Substance: FUROSEMIDE
     Route: 048
  2. MAGNESIUM OXIDE. [Concomitant]
     Active Substance: MAGNESIUM OXIDE
  3. HUMALOG [Concomitant]
     Active Substance: INSULIN LISPRO
     Route: 065
  4. ROSUVASTATIN                       /01588602/ [Concomitant]
     Active Substance: ROSUVASTATIN CALCIUM
     Route: 065
  5. LUPRAC [Concomitant]
     Active Substance: TORSEMIDE
     Route: 065
  6. KAYTWO N [Concomitant]
     Active Substance: MENATETRENONE
     Indication: ANTICOAGULANT THERAPY
     Dosage: 20 MG, SINGLE
     Route: 065
     Dates: start: 20180815, end: 20180815
  7. CARVEDILOL. [Concomitant]
     Active Substance: CARVEDILOL
     Route: 065
  8. CLOPIDOGREL [Concomitant]
     Active Substance: CLOPIDOGREL BISULFATE
     Route: 065
  9. INSULIN [Concomitant]
     Active Substance: INSULIN NOS
     Route: 065
  10. SODIUM RABEPRAZOLE [Concomitant]
     Active Substance: RABEPRAZOLE SODIUM
     Route: 065
  11. WARFARIN                           /00014803/ [Concomitant]
     Active Substance: WARFARIN
     Indication: MYOCARDIAL INFARCTION
     Dosage: 2.5 MG, UNK
     Route: 048
     Dates: start: 20180813
  12. BERIPLEX P/N [Suspect]
     Active Substance: COAGULATION FACTOR IX HUMAN\COAGULATION FACTOR VII HUMAN\COAGULATION FACTOR X HUMAN\PROTEIN C\PROTEIN S HUMAN\PROTHROMBIN
     Indication: HAEMORRHAGE
     Dosage: 1500 IU, UNK
     Route: 042
     Dates: start: 20180815
  13. AZILVA [Concomitant]
     Active Substance: AZILSARTAN KAMEDOXOMIL
     Route: 048

REACTIONS (1)
  - Death [Fatal]
